FAERS Safety Report 26100486 (Version 1)
Quarter: 2025Q4

REPORT INFORMATION
  Report Type: Spontaneous
  Country: EU (occurrence: EU)
  Receive Date: 20251128
  Receipt Date: 20251128
  Transmission Date: 20260119
  Serious: Yes (Other)
  Sender: SANDOZ
  Company Number: EU-BRISTOL-MYERS SQUIBB COMPANY-2025-152836

PATIENT
  Age: 42 Year
  Sex: Male
  Weight: 63 kg

DRUGS (7)
  1. CARBOPLATIN [Suspect]
     Active Substance: CARBOPLATIN
     Indication: Non-small cell lung cancer
     Dosage: DOSE: 5 AUC - MG/ MIN*ML
     Route: 042
     Dates: start: 20250819
  2. CARBOPLATIN [Suspect]
     Active Substance: CARBOPLATIN
     Dosage: DOSE: 5 AUC - MG/ MIN*ML
     Route: 042
     Dates: start: 20250909
  3. CARBOPLATIN [Suspect]
     Active Substance: CARBOPLATIN
     Dosage: DOSE: 5 AUC - MG/ MIN*ML
     Route: 042
     Dates: start: 20250930
  4. NIVOLUMAB [Suspect]
     Active Substance: NIVOLUMAB
     Indication: Non-small cell lung cancer
     Dosage: 360 MG  21 DAYS/CYCLE FOR 3 CYCLES
     Route: 042
     Dates: start: 20250819, end: 20250930
  5. PEMETREXED [Suspect]
     Active Substance: PEMETREXED
     Dosage: 500 MG/M2
     Route: 042
     Dates: start: 20250909
  6. PEMETREXED [Suspect]
     Active Substance: PEMETREXED
     Indication: Non-small cell lung cancer
     Dosage: 500 MG/M2
     Route: 065
     Dates: start: 20250819
  7. PEMETREXED [Suspect]
     Active Substance: PEMETREXED
     Dosage: 501 MG/M2
     Route: 042
     Dates: start: 20250930

REACTIONS (1)
  - Hepatitis [Not Recovered/Not Resolved]

NARRATIVE: CASE EVENT DATE: 20251015
